FAERS Safety Report 14709831 (Version 1)
Quarter: 2018Q2

REPORT INFORMATION
  Report Type: Spontaneous
  Country: LK (occurrence: LK)
  Receive Date: 20180403
  Receipt Date: 20180403
  Transmission Date: 20180711
  Serious: Yes (Hospitalization)
  Sender: FDA-Public Use
  Company Number: LK-SEBELA IRELAND LIMITED-2018SEB00078

PATIENT
  Age: 45 Year
  Sex: Female

DRUGS (1)
  1. AZATHIOPRINE. [Suspect]
     Active Substance: AZATHIOPRINE
     Indication: AUTOIMMUNE HEPATITIS
     Dosage: 50 MG, 1X/DAY
     Route: 065

REACTIONS (3)
  - Immunosuppression [Unknown]
  - Arthritis bacterial [Recovering/Resolving]
  - Burkholderia pseudomallei infection [Recovering/Resolving]
